FAERS Safety Report 5247679-2 (Version None)
Quarter: 2007Q1

REPORT INFORMATION
  Report Type: 
  Country: None (occurrence: None)
  Receive Date: 20070227
  Receipt Date: 20070220
  Transmission Date: 20070707
  Serious: Yes (Other)
  Sender: FDA-Public Use
  Company Number: GB-AVENTIS-200614131EU

PATIENT

DRUGS (1)
  1. CLEXANE [Suspect]
     Indication: PULMONARY EMBOLISM

REACTIONS (1)
  - MYOCARDIAL INFARCTION [None]
